FAERS Safety Report 7343260-X (Version None)
Quarter: 2011Q1

REPORT INFORMATION
  Report Type: 
  Country: None (occurrence: None)
  Receive Date: 20110310
  Receipt Date: 20110228
  Transmission Date: 20110831
  Serious: Yes (Other)
  Sender: FDA-Public Use
  Company Number: US-SOLVAY-00211001641

PATIENT
  Age: 64 Year
  Sex: Male
  Weight: 115.9 kg

DRUGS (4)
  1. ANDROGEL [Suspect]
     Indication: BLOOD TESTOSTERONE DECREASED
     Dosage: DAILY DOSE:  UNKNOWN, AS USED: 10 GRAM
     Route: 062
     Dates: start: 20090101
  2. HYDROCODONE BITARTRATE [Concomitant]
     Indication: PAIN
     Dosage: DAILY DOSE:  UNKNOWN
     Route: 065
  3. LORSATAN-HCT [Concomitant]
     Indication: HYPERTENSION
     Dosage: DAILY DOSE:  UNKNOWN, AS USED: 25 MILLIGRAM
     Route: 065
  4. SPIRONOLACTONE [Concomitant]
     Indication: HYPERTENSION
     Dosage: DAILY DOSE:  UNKNOWN, AS USED: 50 MILLIGRAM
     Route: 065

REACTIONS (3)
  - FALL [None]
  - BREAST PAIN [None]
  - SHOULDER OPERATION [None]
